FAERS Safety Report 9425643 (Version 1)
Quarter: 2013Q3

REPORT INFORMATION
  Report Type: Spontaneous
  Country: US (occurrence: US)
  Receive Date: 20130729
  Receipt Date: 20130729
  Transmission Date: 20140515
  Serious: Yes (Other)
  Sender: FDA-Public Use
  Company Number: US-BAUSCH-BL-2013-004381

PATIENT
  Age: 20 Year
  Sex: Female

DRUGS (3)
  1. ALBUTEROL SULFATE [Suspect]
     Indication: ASTHMA
     Dosage: 5 NEBULIZATIONS
  2. FLUTICASON/SALMETEROL 250/20 [Concomitant]
  3. MONTELUKAST [Concomitant]

REACTIONS (1)
  - Lactic acidosis [Recovered/Resolved]
